FAERS Safety Report 6738838-8 (Version None)
Quarter: 2010Q2

REPORT INFORMATION
  Report Type: 
  Country: None (occurrence: None)
  Receive Date: 20100524
  Receipt Date: 20100513
  Transmission Date: 20101027
  Serious: Yes (Death)
  Sender: FDA-Public Use
  Company Number: JP-MPIJNJ-2010-01951

PATIENT

DRUGS (14)
  1. VELCADE [Suspect]
     Indication: MULTIPLE MYELOMA
     Dosage: 1.5 MG, UNK
     Route: 042
     Dates: start: 20100321, end: 20100321
  2. DECADRON [Concomitant]
     Indication: MULTIPLE MYELOMA
     Dosage: 40 MG, UNK
     Route: 042
     Dates: start: 20100316, end: 20100322
  3. DECADRON [Concomitant]
     Dosage: 24 UNK, UNK
     Route: 042
     Dates: start: 20100323, end: 20100324
  4. MEYLON [Concomitant]
     Indication: MULTIPLE MYELOMA
     Dosage: 4 DF, UNK
     Route: 042
     Dates: start: 20100318, end: 20100324
  5. LASIX [Concomitant]
     Indication: RENAL FAILURE CHRONIC
     Dosage: 2 DF, UNK
     Route: 042
     Dates: start: 20100320, end: 20100324
  6. LASIX [Concomitant]
     Dosage: 1 DF, UNK
     Route: 048
     Dates: start: 20091223, end: 20100324
  7. LAXOBERON [Concomitant]
     Indication: CONSTIPATION
     Dosage: 2 DF, UNK
     Route: 048
     Dates: start: 20091222, end: 20100324
  8. ALDACTONE [Concomitant]
     Indication: RENAL FAILURE CHRONIC
     Dosage: 1 DF, UNK
     Route: 048
     Dates: start: 20091223, end: 20100324
  9. PARIET [Concomitant]
     Indication: PROPHYLAXIS
     Dosage: 1 DF, UNK
     Route: 048
     Dates: start: 20091203, end: 20100324
  10. HALCION [Concomitant]
     Indication: INSOMNIA
     Dosage: 1 DF, UNK
     Route: 048
     Dates: start: 20100104, end: 20100324
  11. BENZALIN [Concomitant]
     Indication: INSOMNIA
     Dosage: 0.5 DF, UNK
     Route: 048
     Dates: start: 20100202, end: 20100324
  12. GASMOTIN [Concomitant]
     Indication: CONSTIPATION
     Dosage: 5 MG, UNK
     Route: 048
     Dates: start: 20100203, end: 20100324
  13. ZYLORIC                            /00003301/ [Concomitant]
     Indication: MULTIPLE MYELOMA
     Dosage: 2 DF, UNK
     Route: 048
     Dates: start: 20100318, end: 20100324
  14. FUNGIZONE [Concomitant]
     Indication: ORAL CANDIDIASIS
     Dosage: 4 ML, UNK
     Route: 048
     Dates: start: 20100323, end: 20100324

REACTIONS (1)
  - TUMOUR LYSIS SYNDROME [None]
